FAERS Safety Report 18705687 (Version 1)
Quarter: 2021Q1

REPORT INFORMATION
  Report Type: Spontaneous
  Country: US (occurrence: US)
  Receive Date: 20210106
  Receipt Date: 20210106
  Transmission Date: 20210419
  Serious: Yes (Life-Threatening)
  Sender: FDA-Public Use
  Company Number: NVSC2021US000584

PATIENT
  Age: 37 Year
  Sex: Male

DRUGS (1)
  1. HYDROXYCHLOROQUINE [Suspect]
     Active Substance: HYDROXYCHLOROQUINE
     Indication: COVID-19
     Dosage: 80 TABLETS OF 200 MG
     Route: 065

REACTIONS (15)
  - Hypokalaemia [Unknown]
  - Cold sweat [Unknown]
  - Electrocardiogram QT prolonged [Recovered/Resolved]
  - Intentional overdose [Recovered/Resolved]
  - Malaise [Unknown]
  - Hypotension [Recovered/Resolved]
  - Electrocardiogram QRS complex prolonged [Recovered/Resolved]
  - Mental status changes [Unknown]
  - Bradycardia [Unknown]
  - Product use in unapproved indication [Unknown]
  - Somnolence [Unknown]
  - Vomiting [Unknown]
  - Dizziness [Unknown]
  - Atrioventricular block complete [Unknown]
  - Chills [Unknown]
